FAERS Safety Report 9280860 (Version 2)
Quarter: 2013Q3

REPORT INFORMATION
  Report Type: Spontaneous
  Country: US (occurrence: US)
  Receive Date: 20130509
  Receipt Date: 20130722
  Transmission Date: 20140515
  Serious: Yes (Death)
  Sender: FDA-Public Use
  Company Number: US-CELGENEUS-163-21880-13050518

PATIENT
  Age: 50 Year
  Sex: Female

DRUGS (23)
  1. REVLIMID [Suspect]
     Indication: PLASMA CELL MYELOMA
     Dosage: 25 MILLIGRAM
     Route: 048
     Dates: start: 200811
  2. REVLIMID [Suspect]
     Dosage: 25 MILLIGRAM
     Route: 048
     Dates: start: 200903
  3. REVLIMID [Suspect]
     Dosage: 25 MILLIGRAM
     Route: 048
     Dates: start: 201003
  4. ALBUTEROL AEROSOL [Concomitant]
     Indication: PRODUCT USED FOR UNKNOWN INDICATION
     Route: 065
  5. ATIVAN [Concomitant]
     Indication: PRODUCT USED FOR UNKNOWN INDICATION
     Route: 065
  6. CYMBALTA [Concomitant]
     Indication: PRODUCT USED FOR UNKNOWN INDICATION
     Dosage: 60 MILLIGRAM
     Route: 048
  7. DECADRON [Concomitant]
     Indication: PRODUCT USED FOR UNKNOWN INDICATION
     Route: 065
  8. ELAVIL [Concomitant]
     Indication: PRODUCT USED FOR UNKNOWN INDICATION
     Dosage: 25 MILLIGRAM
     Route: 065
  9. PROTONIX [Concomitant]
     Indication: PRODUCT USED FOR UNKNOWN INDICATION
     Route: 048
  10. SINGULAIR [Concomitant]
     Indication: PRODUCT USED FOR UNKNOWN INDICATION
     Dosage: 10 MILLIGRAM
     Route: 048
  11. AMOXICILLIN AND CLAVULANATE POTASSIUM [Concomitant]
     Indication: ACUTE SINUSITIS
     Dosage: 875-125MG
     Route: 048
     Dates: start: 20101217
  12. ACYCLOVIR [Concomitant]
     Indication: PAIN
     Dosage: 4800 MILLIGRAM
     Route: 048
     Dates: start: 20110127
  13. DILAUDID [Concomitant]
     Indication: PAIN
     Route: 048
  14. METHADONE HCL [Concomitant]
     Indication: PAIN
     Dosage: 7.5 MILLIGRAM
     Route: 048
  15. NYSTATIN [Concomitant]
     Indication: PAIN
     Dosage: 100000 UNIT/ML
     Route: 048
     Dates: start: 20110127
  16. GLIPIZIDE ER [Concomitant]
     Indication: DIABETES MELLITUS
     Dosage: 20 MILLIGRAM
     Route: 048
  17. METFORMIN HCL [Concomitant]
     Indication: DIABETES MELLITUS
     Dosage: 2000 MILLIGRAM
     Route: 048
  18. DEXAMETHASONE [Concomitant]
     Indication: PRODUCT USED FOR UNKNOWN INDICATION
     Dosage: 20 MILLIGRAM
     Route: 048
     Dates: start: 20101230
  19. ONDASETRON [Concomitant]
     Indication: NAUSEA
     Dosage: 24 MILLIGRAM
     Route: 048
     Dates: start: 20101230
  20. ONDASETRON [Concomitant]
     Indication: VOMITING
  21. OXYBUTYNIN CHLORIDE [Concomitant]
     Indication: PRODUCT USED FOR UNKNOWN INDICATION
     Route: 048
     Dates: start: 20101230
  22. PROCHLORPERAZINE MALEATE [Concomitant]
     Indication: NAUSEA
     Dosage: 40 MILLIGRAM
     Route: 048
     Dates: start: 20101230
  23. LYRICA [Concomitant]
     Indication: NEUROPATHY PERIPHERAL
     Dosage: 150 MILLIGRAM
     Route: 048

REACTIONS (2)
  - Plasma cell myeloma [Fatal]
  - Neutropenic sepsis [Fatal]
